FAERS Safety Report 8134187-4 (Version None)
Quarter: 2012Q1

REPORT INFORMATION
  Report Type: 
  Country: None (occurrence: None)
  Receive Date: 20120214
  Receipt Date: 20120208
  Transmission Date: 20120608
  Serious: Yes (Other)
  Sender: FDA-Public Use
  Company Number: BR-BAYER-201019362LA

PATIENT
  Age: 30 Year
  Sex: Female

DRUGS (1)
  1. YAZ [Suspect]
     Indication: CONTRACEPTION
     Dosage: POSOLOGY: 24D/4D
     Route: 048
     Dates: start: 20100101, end: 20100101

REACTIONS (6)
  - NAUSEA [None]
  - RASH [None]
  - CAESAREAN SECTION [None]
  - BREAST SWELLING [None]
  - PREGNANCY ON ORAL CONTRACEPTIVE [None]
  - FOOD AVERSION [None]
